FAERS Safety Report 21799567 (Version 1)
Quarter: 2022Q4

REPORT INFORMATION
  Report Type: Report from Study
  Country: US (occurrence: US)
  Receive Date: 20221230
  Receipt Date: 20221230
  Transmission Date: 20230112
  Serious: Yes (Other)
  Sender: FDA-Public Use
  Company Number: US-GLAXOSMITHKLINE-US2020AMR127397

PATIENT

DRUGS (46)
  1. NIRAPARIB [Suspect]
     Active Substance: NIRAPARIB
     Indication: Ovarian cancer
     Dosage: 300 MG, QD
     Dates: start: 2020
  2. NIRAPARIB [Suspect]
     Active Substance: NIRAPARIB
     Dosage: 300 MG, QD
     Route: 065
     Dates: start: 202005
  3. NIRAPARIB [Suspect]
     Active Substance: NIRAPARIB
     Dosage: 300 MG, QD
     Dates: start: 20200709
  4. NIRAPARIB [Suspect]
     Active Substance: NIRAPARIB
     Dosage: 2 DF, QD(200 MG 2 CAPSULES)
  5. NIRAPARIB [Suspect]
     Active Substance: NIRAPARIB
     Dosage: 300 MG, QD
  6. NIRAPARIB [Suspect]
     Active Substance: NIRAPARIB
     Dosage: 100 MG, QD
     Dates: start: 20200813
  7. NIRAPARIB [Suspect]
     Active Substance: NIRAPARIB
     Dosage: 200 MG, QD
     Dates: start: 20200827
  8. NIRAPARIB [Suspect]
     Active Substance: NIRAPARIB
     Dosage: 200 MG, QD
  9. NIRAPARIB [Suspect]
     Active Substance: NIRAPARIB
     Dosage: 200 MG, QD
  10. NIRAPARIB [Suspect]
     Active Substance: NIRAPARIB
     Dosage: 200 MG, QD
  11. NIRAPARIB [Suspect]
     Active Substance: NIRAPARIB
     Dosage: 200 MG, QD
  12. NIRAPARIB [Suspect]
     Active Substance: NIRAPARIB
     Dosage: 200 MG, QD
  13. NIRAPARIB [Suspect]
     Active Substance: NIRAPARIB
     Dosage: 200 MG, QD
     Route: 048
  14. NIRAPARIB [Suspect]
     Active Substance: NIRAPARIB
     Dosage: 200 MG, QD
     Route: 048
  15. NIRAPARIB [Suspect]
     Active Substance: NIRAPARIB
     Dosage: 200 MG, QD
     Route: 048
  16. NIRAPARIB [Suspect]
     Active Substance: NIRAPARIB
     Dosage: 200 MG, QD
  17. NIRAPARIB [Suspect]
     Active Substance: NIRAPARIB
     Dosage: 200 MG, QD
     Route: 048
  18. NIRAPARIB [Suspect]
     Active Substance: NIRAPARIB
     Dosage: 200 MG, QD
     Route: 048
     Dates: start: 202205
  19. NIRAPARIB [Suspect]
     Active Substance: NIRAPARIB
     Dosage: 200 MG, QD
     Route: 048
  20. NIRAPARIB [Suspect]
     Active Substance: NIRAPARIB
     Dosage: 200 MG, QD
     Route: 048
  21. ALBUTEROL [Concomitant]
     Active Substance: ALBUTEROL
     Indication: Product used for unknown indication
     Dosage: UNK
  22. ALBUTEROL SULFATE [Concomitant]
     Active Substance: ALBUTEROL SULFATE
     Indication: Product used for unknown indication
     Dosage: UNK
  23. VITAMIN B12 [Concomitant]
     Active Substance: CYANOCOBALAMIN
     Indication: Product used for unknown indication
     Dosage: 1 MG, QD
  24. BENEFIBER [Concomitant]
     Active Substance: STARCH, WHEAT
     Indication: Constipation
     Dosage: UNK UNK, QD
  25. CALCIUM [Concomitant]
     Active Substance: CALCIUM
     Indication: Product used for unknown indication
     Dosage: 600 MG, QD
  26. IRON [Concomitant]
     Active Substance: IRON
     Indication: Product used for unknown indication
     Dosage: 325 MG, QD
  27. KLOR-CON M10 [Concomitant]
     Active Substance: POTASSIUM CHLORIDE
     Indication: Product used for unknown indication
     Dosage: 10 MEQ, QD
  28. MIRALAX [Concomitant]
     Active Substance: POLYETHYLENE GLYCOL 3350
     Indication: Constipation
     Dosage: UNK
  29. MIRALAX [Concomitant]
     Active Substance: POLYETHYLENE GLYCOL 3350
     Indication: Abdominal pain
  30. MONTELUKAST [Concomitant]
     Active Substance: MONTELUKAST SODIUM
     Indication: Product used for unknown indication
     Dosage: 10 MG, QD
  31. RESTASIS EYE DROP [Concomitant]
     Indication: Product used for unknown indication
     Dosage: UNK
  32. SPIRONOLACTONE [Concomitant]
     Active Substance: SPIRONOLACTONE
     Indication: Product used for unknown indication
     Dosage: 25 MG, QD
  33. SYMBICORT [Concomitant]
     Active Substance: BUDESONIDE\FORMOTEROL FUMARATE DIHYDRATE
     Indication: Product used for unknown indication
     Dosage: UNK
  34. TEMAZEPAM [Concomitant]
     Active Substance: TEMAZEPAM
     Indication: Insomnia
     Dosage: UNK UNK, Z (AS NEEDED)
  35. TEMAZEPAM [Concomitant]
     Active Substance: TEMAZEPAM
     Dosage: 15 MG
  36. VITAMIN C [Concomitant]
     Active Substance: ASCORBIC ACID
     Indication: Product used for unknown indication
     Dosage: 1000 MG, QD
  37. PROPRANOLOL [Concomitant]
     Active Substance: PROPRANOLOL HYDROCHLORIDE
     Indication: Product used for unknown indication
     Dosage: UNK
  38. ZINC [Concomitant]
     Active Substance: ZINC
     Indication: Product used for unknown indication
     Dosage: 15 MG, QD
  39. ESTRADIOL [Concomitant]
     Active Substance: ESTRADIOL
     Indication: Product used for unknown indication
     Dosage: UNK
  40. AZITHROMYCIN [Concomitant]
     Active Substance: AZITHROMYCIN
     Indication: Product used for unknown indication
     Dosage: UNK
  41. DEXAMETHASONE [Concomitant]
     Active Substance: DEXAMETHASONE
     Indication: Product used for unknown indication
     Dosage: UNK
  42. GLIPIZIDE [Concomitant]
     Active Substance: GLIPIZIDE
     Indication: Product used for unknown indication
     Dosage: UNK
  43. PAXLOVID [Concomitant]
     Active Substance: NIRMATRELVIR\RITONAVIR
     Indication: Product used for unknown indication
     Dosage: UNK
  44. GUAIFENESIN [Concomitant]
     Active Substance: GUAIFENESIN
     Indication: Product used for unknown indication
     Dosage: UNK
  45. ALBUTEROL [Concomitant]
     Active Substance: ALBUTEROL
     Indication: Product used for unknown indication
     Dosage: UNK
  46. IPRATROPIUM [Concomitant]
     Active Substance: IPRATROPIUM
     Indication: Product used for unknown indication
     Dosage: UNK

REACTIONS (20)
  - Pneumonia [Recovering/Resolving]
  - Constipation [Not Recovered/Not Resolved]
  - Nausea [Recovered/Resolved]
  - Asthenia [Unknown]
  - Fatigue [Not Recovered/Not Resolved]
  - Dyspnoea exertional [Unknown]
  - Insomnia [Recovering/Resolving]
  - Contusion [Unknown]
  - Sleep disorder [Not Recovered/Not Resolved]
  - Abdominal pain [Unknown]
  - Platelet disorder [Recovering/Resolving]
  - Red blood cell count decreased [Not Recovered/Not Resolved]
  - Magnetic resonance imaging abnormal [Unknown]
  - Computerised tomogram abnormal [Unknown]
  - Asthma [Not Recovered/Not Resolved]
  - Diarrhoea [Not Recovered/Not Resolved]
  - Phlebitis [Unknown]
  - Gastrointestinal motility disorder [Not Recovered/Not Resolved]
  - Muscle spasms [Recovered/Resolved]
  - COVID-19 [Recovering/Resolving]

NARRATIVE: CASE EVENT DATE: 20200831
